FAERS Safety Report 5285781-X (Version None)
Quarter: 2007Q1

REPORT INFORMATION
  Report Type: 
  Country: None (occurrence: None)
  Receive Date: 20070126
  Receipt Date: 20061124
  Transmission Date: 20070707
  Serious: No
  Sender: FDA-Public Use
  Company Number: 2006CT001007

PATIENT
  Age: 55 Year
  Sex: Male
  Weight: 130.1823 kg

DRUGS (5)
  1. VENTAVIS [Suspect]
     Indication: PULMONARY HYPERTENSION
     Dosage: 5 UG;6TO9X/DAY;INH
     Route: 055
     Dates: start: 20061121, end: 20061123
  2. LASIX [Concomitant]
  3. ALLEGRA [Concomitant]
  4. VITAMIN CAP [Concomitant]
  5. POTASSIUM ACETATE [Concomitant]

REACTIONS (3)
  - DIZZINESS [None]
  - NAUSEA [None]
  - VISION BLURRED [None]
